FAERS Safety Report 7600993-5 (Version None)
Quarter: 2011Q3

REPORT INFORMATION
  Report Type: 
  Country: None (occurrence: None)
  Receive Date: 20110711
  Receipt Date: 20110615
  Transmission Date: 20111222
  Serious: Yes (Other)
  Sender: FDA-Public Use
  Company Number: US-GLAXOSMITHKLINE-A0848924A

PATIENT
  Sex: Male
  Weight: 100.5 kg

DRUGS (7)
  1. STARLIX [Concomitant]
  2. AVANDIA [Suspect]
     Indication: DIABETES MELLITUS
     Dosage: 4MG TWICE PER DAY
     Route: 048
     Dates: end: 20070101
  3. INSULIN [Concomitant]
  4. LIPITOR [Concomitant]
  5. ZESTRIL [Concomitant]
  6. ASPIRIN [Concomitant]
  7. COZAAR [Concomitant]

REACTIONS (4)
  - CARDIOVASCULAR DISORDER [None]
  - ANGINA PECTORIS [None]
  - CORONARY ARTERY DISEASE [None]
  - MACULAR OEDEMA [None]
